FAERS Safety Report 4982504-6 (Version None)
Quarter: 2006Q2

REPORT INFORMATION
  Report Type: 
  Country: None (occurrence: None)
  Receive Date: 20060425
  Receipt Date: 20060420
  Transmission Date: 20061013
  Serious: Yes (Congenital Anomaly)
  Sender: FDA-Public Use
  Company Number: US-JNJFOC-20060405202

PATIENT
  Age: 8 Month
  Sex: Female

DRUGS (3)
  1. ARESTIN [Suspect]
  2. ARESTIN [Suspect]
  3. ARESTIN [Suspect]
     Indication: PERIODONTITIS

REACTIONS (1)
  - CONGENITAL FOOT MALFORMATION [None]
